FAERS Safety Report 12811192 (Version 1)
Quarter: 2016Q4

REPORT INFORMATION
  Report Type: Spontaneous
  Country: US (occurrence: US)
  Receive Date: 20161004
  Receipt Date: 20161004
  Transmission Date: 20170207
  Serious: Yes (Disabling, Other)
  Sender: FDA-Public Use
  Company Number: None

PATIENT
  Age: 59 Year
  Sex: Male
  Weight: 76.5 kg

DRUGS (3)
  1. VASELINE PURE [Suspect]
     Active Substance: PETROLATUM
     Indication: ACTINIC KERATOSIS
     Route: 061
     Dates: start: 20160917, end: 20160922
  2. PREDNISONE. [Concomitant]
     Active Substance: PREDNISONE
  3. BENADRIL [Concomitant]

REACTIONS (2)
  - Sensitivity of teeth [None]
  - Burning sensation mucosal [None]

NARRATIVE: CASE EVENT DATE: 20160917
